FAERS Safety Report 5881480-1 (Version None)
Quarter: 2008Q3

REPORT INFORMATION
  Report Type: 
  Country: None (occurrence: None)
  Receive Date: 20080912
  Receipt Date: 20080702
  Transmission Date: 20090109
  Serious: No
  Sender: FDA-Public Use
  Company Number: US-ABBOTT-08P-163-0460559-00

PATIENT
  Sex: Female
  Weight: 83.99 kg

DRUGS (6)
  1. HUMIRA [Suspect]
     Indication: RHEUMATOID ARTHRITIS
     Route: 058
  2. HUMIRA [Suspect]
     Route: 058
  3. PREDNISONE TAB [Concomitant]
     Indication: RHEUMATOID ARTHRITIS
     Route: 048
  4. ROSUVASTATIN [Concomitant]
     Indication: BLOOD CHOLESTEROL
     Route: 048
  5. HYDROXYCHLOROQUINE [Concomitant]
     Indication: RHEUMATOID ARTHRITIS
     Route: 048
  6. METHOTREXATE [Concomitant]
     Indication: RHEUMATOID ARTHRITIS
     Route: 050

REACTIONS (4)
  - ACCIDENTAL EXPOSURE [None]
  - DRUG INEFFECTIVE [None]
  - INJECTION SITE IRRITATION [None]
  - VITAMIN D DECREASED [None]
